FAERS Safety Report 7003727-0 (Version None)
Quarter: 2010Q3

REPORT INFORMATION
  Report Type: 
  Country: None (occurrence: None)
  Receive Date: 20100917
  Receipt Date: 20100908
  Transmission Date: 20110219
  Serious: Yes (Other)
  Sender: FDA-Public Use
  Company Number: 2010US003726

PATIENT
  Age: 38 Year
  Sex: Female

DRUGS (2)
  1. PROGRAF [Suspect]
     Indication: RENAL TRANSPLANT
  2. MYCOPHENOLATE MOFETIL [Concomitant]

REACTIONS (4)
  - BACK PAIN [None]
  - MULTIPLE MYELOMA [None]
  - RENAL TUBULAR DISORDER [None]
  - STEM CELL TRANSPLANT [None]
